FAERS Safety Report 22249806 (Version 1)
Quarter: 2023Q2

REPORT INFORMATION
  Report Type: Spontaneous
  Country: DE (occurrence: DE)
  Receive Date: 20230425
  Receipt Date: 20230425
  Transmission Date: 20230721
  Serious: Yes (Other)
  Sender: FDA-Public Use
  Company Number: DE-002147023-NVSC2023DE090997

PATIENT
  Sex: Female

DRUGS (2)
  1. NEVANAC [Suspect]
     Active Substance: NEPAFENAC
     Indication: Postoperative care
     Dosage: UNK, TID (STRENGTH: 1 MG/ML)
     Route: 065
     Dates: end: 202303
  2. NEVANAC [Suspect]
     Active Substance: NEPAFENAC
     Indication: Macular oedema
     Dosage: UNK, QD (STRENGTH: 3 MG/ML)
     Route: 065
     Dates: end: 20230413

REACTIONS (2)
  - Macular oedema [Unknown]
  - Vitreous haemorrhage [Recovering/Resolving]

NARRATIVE: CASE EVENT DATE: 20230413
